FAERS Safety Report 18143563 (Version 1)
Quarter: 2020Q3

REPORT INFORMATION
  Report Type: Spontaneous
  Country: CN (occurrence: CN)
  Receive Date: 20200812
  Receipt Date: 20200812
  Transmission Date: 20201103
  Serious: Yes (Hospitalization, Other)
  Sender: FDA-Public Use
  Company Number: CN-BAXTER-2020BAX016267

PATIENT
  Age: 82 Year
  Sex: Male
  Weight: 57 kg

DRUGS (6)
  1. 5% GLUCOSE  INJECTION [Suspect]
     Active Substance: DEXTROSE
     Indication: MEDICATION DILUTION
     Dosage: PIRARUBICIN HYDROCHLORIDE 85 MG + 5% GS 100 ML
     Route: 041
     Dates: start: 20200714, end: 20200714
  2. PIRARUBICIN HYDROCHLORIDE [Suspect]
     Active Substance: PIRARUBICIN HYDROCHLORIDE
     Indication: DIFFUSE LARGE B-CELL LYMPHOMA
     Dosage: PIRARUBICIN HYDROCHLORIDE 85 MG + 5% GS 100 ML
     Route: 041
     Dates: start: 20200714, end: 20200714
  3. ENDOXAN [Suspect]
     Active Substance: CYCLOPHOSPHAMIDE
     Indication: DIFFUSE LARGE B-CELL LYMPHOMA
     Dosage: ENDOXAN 1.2 G + NS 100 ML
     Route: 041
     Dates: start: 20200714, end: 20200714
  4. 0.9% SODIUM CHLORIDE INJECTION [Suspect]
     Active Substance: SODIUM CHLORIDE
     Dosage: MABTHERA 600 MG + NS 600 ML
     Route: 041
     Dates: start: 20200713, end: 20200713
  5. 0.9% SODIUM CHLORIDE INJECTION [Suspect]
     Active Substance: SODIUM CHLORIDE
     Indication: MEDICATION DILUTION
     Dosage: ENDOXAN 1.2 G + NS 100 ML
     Route: 041
     Dates: start: 20200714, end: 20200714
  6. MABTHERA [Suspect]
     Active Substance: RITUXIMAB
     Indication: DIFFUSE LARGE B-CELL LYMPHOMA
     Dosage: MABTHERA 600 MG + NS 600 ML
     Route: 041
     Dates: start: 20200713, end: 20200713

REACTIONS (3)
  - Leukopenia [Recovering/Resolving]
  - Neutrophil count decreased [Recovering/Resolving]
  - Myelosuppression [Unknown]

NARRATIVE: CASE EVENT DATE: 20200724
